FAERS Safety Report 14058128 (Version 1)
Quarter: 2017Q4

REPORT INFORMATION
  Report Type: Spontaneous
  Country: ES (occurrence: ES)
  Receive Date: 20171006
  Receipt Date: 20171006
  Transmission Date: 20180321
  Serious: Yes (Other)
  Sender: FDA-Public Use
  Company Number: ES-AMGEN-ESPSP2017147394

PATIENT
  Age: 73 Year
  Sex: Male

DRUGS (6)
  1. VECTIBIX [Suspect]
     Active Substance: PANITUMUMAB
     Indication: COLORECTAL CANCER METASTATIC
     Dosage: 6 MG/KG, CYCLICAL
     Route: 065
     Dates: start: 20150318
  2. OXALIPLATIN. [Suspect]
     Active Substance: OXALIPLATIN
     Dosage: UNK UNK, CYCLICAL (REDUCTION BY 15%)
     Route: 065
  3. 5 FU [Suspect]
     Active Substance: FLUOROURACIL
     Dosage: UNK UNK, CYCLICAL (REDUCTION BY 15%)
     Route: 065
  4. OXALIPLATIN. [Suspect]
     Active Substance: OXALIPLATIN
     Indication: COLORECTAL CANCER METASTATIC
     Dosage: UNK UNK, CYCLICAL
     Route: 065
     Dates: start: 20150318
  5. FOLINIC ACID [Suspect]
     Active Substance: LEUCOVORIN
     Indication: COLORECTAL CANCER METASTATIC
     Dosage: UNK UNK, CYCLICAL (6 MONTHS STANDARD DOSE)
     Route: 065
     Dates: start: 20150318
  6. 5 FU [Suspect]
     Active Substance: FLUOROURACIL
     Indication: COLORECTAL CANCER METASTATIC
     Dosage: 2400 MG/M2, CYCLICAL (6 MONTHS STANDARD DOSE, CONTINUOUS INFUSION)
     Route: 065
     Dates: start: 20150318

REACTIONS (8)
  - Dry mouth [Recovering/Resolving]
  - Paronychia [Recovering/Resolving]
  - Therapy partial responder [Unknown]
  - Diarrhoea [Unknown]
  - Mucosal inflammation [Unknown]
  - Dermatitis acneiform [Recovered/Resolved]
  - Renal failure [Unknown]
  - Catheter site haematoma [Unknown]
